FAERS Safety Report 24810253 (Version 1)
Quarter: 2025Q1

REPORT INFORMATION
  Report Type: Spontaneous
  Country: US (occurrence: None)
  Receive Date: 20250103
  Receipt Date: 20250103
  Transmission Date: 20250409
  Serious: Yes (Hospitalization)
  Sender: FDA-CTU
  Company Number: None

PATIENT
  Age: 42 Year
  Sex: Male
  Weight: 95.85 kg

DRUGS (2)
  1. DIETARY SUPPLEMENT [Suspect]
     Active Substance: DIETARY SUPPLEMENT
     Route: 048
     Dates: start: 20250101, end: 20250101
  2. SILDENAFIL [Suspect]
     Active Substance: SILDENAFIL

REACTIONS (7)
  - Dizziness [None]
  - Feeling cold [None]
  - Palpitations [None]
  - Tachycardia [None]
  - Tremor [None]
  - Anxiety [None]
  - Accidental exposure to product [None]

NARRATIVE: CASE EVENT DATE: 20250101
